FAERS Safety Report 6675281-4 (Version None)
Quarter: 2010Q2

REPORT INFORMATION
  Report Type: 
  Country: None (occurrence: None)
  Receive Date: 20100409
  Receipt Date: 20100107
  Transmission Date: 20101027
  Serious: No
  Sender: FDA-Public Use
  Company Number: A0838301A

PATIENT
  Age: 67 Year
  Sex: Female

DRUGS (12)
  1. TYKERB [Suspect]
     Indication: BREAST CANCER
     Dosage: 1000MG PER DAY
     Route: 048
     Dates: start: 20091208, end: 20091229
  2. AROMASIN [Concomitant]
  3. SYNTHROID [Concomitant]
  4. LORAZEPAM [Concomitant]
  5. COMBIVENT [Concomitant]
  6. PROMETHAZINE [Concomitant]
  7. TEMAZEPAM [Concomitant]
  8. PRILOSEC [Concomitant]
  9. VITAMIN B COMPLEX CAP [Concomitant]
  10. DARVOCET [Concomitant]
  11. MULTI-VITAMIN [Concomitant]
  12. MUCINEX [Concomitant]

REACTIONS (2)
  - DYSPNOEA [None]
  - VOMITING [None]
